FAERS Safety Report 11283988 (Version 1)
Quarter: 2015Q3

REPORT INFORMATION
  Report Type: Report from Study
  Country: NL (occurrence: NL)
  Receive Date: 20150720
  Receipt Date: 20150720
  Transmission Date: 20151125
  Serious: Yes (Death)
  Sender: FDA-Public Use
  Company Number: NL-CELGENE-114-20785-11032720

PATIENT
  Age: 89 Year
  Sex: Male
  Weight: 74.5 kg

DRUGS (10)
  1. THALIDOMIDE [Suspect]
     Active Substance: THALIDOMIDE
     Route: 048
     Dates: start: 20110214
  2. DEXAMETHASONE. [Suspect]
     Active Substance: DEXAMETHASONE
     Dosage: 1.0714 MILLIGRAM
     Route: 048
     Dates: start: 20110214
  3. LOVENOX [Concomitant]
     Active Substance: ENOXAPARIN SODIUM
     Indication: ATRIAL FIBRILLATION
     Dosage: 80 MILLIGRAM
     Route: 048
     Dates: start: 20100513, end: 20110309
  4. THALIDOMIDE [Suspect]
     Active Substance: THALIDOMIDE
     Indication: PLASMA CELL MYELOMA
     Route: 048
     Dates: start: 20110114
  5. DEXAMETHASONE. [Suspect]
     Active Substance: DEXAMETHASONE
     Indication: PLASMA CELL MYELOMA
     Route: 048
     Dates: start: 20110114
  6. ACENOCOUMAROL [Concomitant]
     Active Substance: ACENOCOUMAROL
     Indication: ATRIAL FIBRILLATION
     Dosage: 1 MILLIGRAM
     Route: 048
     Dates: end: 20110309
  7. FUROSEMIDE. [Concomitant]
     Active Substance: FUROSEMIDE
     Indication: ATRIAL FIBRILLATION
     Route: 048
     Dates: start: 20101216, end: 20110309
  8. APD [Concomitant]
     Indication: BONE DENSITY DECREASED
     Dosage: .125 MILLIGRAM
     Route: 041
     Dates: start: 20101012, end: 20110309
  9. SOTALOL. [Concomitant]
     Active Substance: SOTALOL
     Indication: ATRIAL FIBRILLATION
     Dosage: 40 MILLIGRAM
     Route: 048
     Dates: start: 20101101, end: 20110309
  10. SPIRIVA [Concomitant]
     Active Substance: TIOTROPIUM BROMIDE MONOHYDRATE
     Indication: CHRONIC OBSTRUCTIVE PULMONARY DISEASE
     Route: 055
     Dates: start: 20101206, end: 20110309

REACTIONS (3)
  - Cardiac arrest [Fatal]
  - Apnoea [Fatal]
  - Pneumonia [Fatal]

NARRATIVE: CASE EVENT DATE: 20110309
